FAERS Safety Report 23196462 (Version 1)
Quarter: 2023Q4

REPORT INFORMATION
  Report Type: Report from Study
  Country: US (occurrence: US)
  Receive Date: 20231117
  Receipt Date: 20231117
  Transmission Date: 20240109
  Serious: Yes (Hospitalization, Other)
  Sender: FDA-Public Use
  Company Number: US-ALXN-A202313030AA

PATIENT
  Sex: Male

DRUGS (1)
  1. SOLIRIS [Suspect]
     Active Substance: ECULIZUMAB
     Indication: Myasthenia gravis
     Dosage: UNK
     Route: 065

REACTIONS (6)
  - Myasthenia gravis crisis [Unknown]
  - Dyspnoea at rest [Unknown]
  - Diplopia [Unknown]
  - Eyelid ptosis [Unknown]
  - Visual impairment [Unknown]
  - Fatigue [Unknown]
